FAERS Safety Report 6216169-2 (Version None)
Quarter: 2009Q2

REPORT INFORMATION
  Report Type: 
  Country: None (occurrence: None)
  Receive Date: 20090605
  Receipt Date: 20090602
  Transmission Date: 20091009
  Serious: Yes (Other)
  Sender: FDA-Public Use
  Company Number: AU-AVENTIS-200915602GDDC

PATIENT
  Age: 68 Year
  Sex: Female

DRUGS (5)
  1. METFORMIN HYDROCHLORIDE [Suspect]
  2. GLIBENCLAMIDE [Suspect]
  3. INSULIN GLARGINE [Suspect]
  4. LERCANIDIPINE [Suspect]
  5. TELMISARTAN [Suspect]

REACTIONS (4)
  - LACTIC ACIDOSIS [None]
  - NAUSEA [None]
  - RENAL FAILURE ACUTE [None]
  - VOMITING [None]
